FAERS Safety Report 6403538-0 (Version None)
Quarter: 2009Q4

REPORT INFORMATION
  Report Type: 
  Country: None (occurrence: None)
  Receive Date: 20091015
  Receipt Date: 20091015
  Transmission Date: 20100525
  Serious: Yes (Life-Threatening, Disabling)
  Sender: FDA-Public Use
  Company Number: None

PATIENT
  Age: 59 Year
  Sex: Female
  Weight: 78.0187 kg

DRUGS (1)
  1. ROCEPHIN [Suspect]
     Indication: OROPHARYNGEAL PAIN
     Dosage: ? ONE INJECTION IM, 1 TIME
     Route: 030
     Dates: start: 20091013, end: 20091013

REACTIONS (3)
  - CHEST DISCOMFORT [None]
  - FRUSTRATION [None]
  - HYPERSENSITIVITY [None]
